FAERS Safety Report 4780619-9 (Version None)
Quarter: 2005Q3

REPORT INFORMATION
  Report Type: 
  Country: None (occurrence: None)
  Receive Date: 20050914
  Receipt Date: 20040721
  Transmission Date: 20060218
  Serious: Yes (Hospitalization)
  Sender: FDA-Public Use
  Company Number: 163-20785-04070543

PATIENT
  Age: 69 Year
  Sex: Female

DRUGS (8)
  1. THALOMID [Suspect]
     Indication: MULTIPLE MYELOMA
     Dosage: 400 MG, DAILY, ORAL
     Route: 048
     Dates: start: 20040620
  2. COUMADIN [Concomitant]
  3. MOTRIN [Concomitant]
  4. VITAMIN B6 [Concomitant]
  5. WELLBUTRIN [Concomitant]
  6. CALCIUM (CALCIUM) [Concomitant]
  7. ARIMIDEX [Concomitant]
  8. DECADRON [Concomitant]

REACTIONS (2)
  - BRADYCARDIA [None]
  - CARDIAC FAILURE CONGESTIVE [None]
